FAERS Safety Report 5787678-5 (Version None)
Quarter: 2008Q2

REPORT INFORMATION
  Report Type: 
  Country: None (occurrence: None)
  Receive Date: 20080624
  Receipt Date: 20080624
  Transmission Date: 20081010
  Serious: Yes (Life-Threatening)
  Sender: FDA-Public Use
  Company Number: None

PATIENT
  Sex: Female
  Weight: 58.6 kg

DRUGS (3)
  1. BUSULFAN [Suspect]
     Indication: AMYOTROPHIC LATERAL SCLEROSIS
     Dosage: 56 MG 16 DOSES Q 6 HR ORAL
     Route: 048
     Dates: start: 20080522, end: 20080525
  2. CYCLOPHOSPHAMIDE [Suspect]
     Indication: AMYOTROPHIC LATERAL SCLEROSIS
     Dosage: 3600 MG DAILY X2 IV
     Route: 042
     Dates: start: 20080526
  3. CYCLOPHOSPHAMIDE [Suspect]
     Indication: AMYOTROPHIC LATERAL SCLEROSIS
     Dosage: 3600 MG DAILY X2 IV
     Route: 042
     Dates: start: 20080527

REACTIONS (2)
  - ENCEPHALITIS VIRAL [None]
  - HALLUCINATION [None]
